FAERS Safety Report 9862929 (Version 1)
Quarter: 2014Q1

REPORT INFORMATION
  Report Type: Spontaneous
  Country: TR (occurrence: TR)
  Receive Date: 20140203
  Receipt Date: 20140203
  Transmission Date: 20141002
  Serious: Yes (Other)
  Sender: FDA-Public Use
  Company Number: PHHY2014TR009323

PATIENT
  Age: 52 Year
  Sex: Female

DRUGS (7)
  1. ENTACAPONE-LEVODOPA-CARBIDOPA [Suspect]
     Indication: PARKINSON^S DISEASE
     Dosage: 300 MG, UNK
  2. ENTACAPONE-LEVODOPA-CARBIDOPA [Suspect]
     Dosage: 400 MG, PER DAY
  3. ENTACAPONE-LEVODOPA-CARBIDOPA [Suspect]
     Dosage: 600 MG, PER DAY
  4. ENTACAPONE-LEVODOPA-CARBIDOPA [Suspect]
     Dosage: 400 MG, PER DAY
  5. PRAMIPEXOLE [Suspect]
     Indication: PARKINSON^S DISEASE
     Dosage: 3 MG, UNK
  6. PRAMIPEXOLE [Suspect]
     Dosage: 3.75 MG, UNK
  7. RASAGILINE [Concomitant]
     Indication: PARKINSON^S DISEASE
     Dosage: 1 MG, UNK

REACTIONS (7)
  - Torticollis [Recovering/Resolving]
  - Neck deformity [Unknown]
  - Musculoskeletal discomfort [Recovering/Resolving]
  - Bradykinesia [Unknown]
  - Dizziness postural [Unknown]
  - Orthostatic hypotension [Unknown]
  - Gait disturbance [Unknown]
